FAERS Safety Report 9321907 (Version 1)
Quarter: 2013Q2

REPORT INFORMATION
  Report Type: Spontaneous
  Country: US (occurrence: None)
  Receive Date: 20130530
  Receipt Date: 20130530
  Transmission Date: 20140414
  Serious: Yes (Life-Threatening, Other)
  Sender: FDA-Public Use
  Company Number: None

PATIENT
  Age: 28 Year
  Sex: Male
  Weight: 83.92 kg

DRUGS (1)
  1. ALEVE 220 MG BAYER HEALTH CARE [Suspect]
     Indication: HEADACHE
     Dosage: 220 MG 2 PILLS PO
     Route: 048
     Dates: start: 20130118, end: 20130118

REACTIONS (5)
  - Pruritus generalised [None]
  - Scab [None]
  - Skin exfoliation [None]
  - Fungal infection [None]
  - Stevens-Johnson syndrome [None]
